FAERS Safety Report 23269197 (Version 1)
Quarter: 2023Q4

REPORT INFORMATION
  Report Type: Report from Study
  Country: US (occurrence: US)
  Receive Date: 20231207
  Receipt Date: 20231207
  Transmission Date: 20240110
  Serious: Yes (Hospitalization, Other)
  Sender: FDA-Public Use
  Company Number: US-ABBVIE-5526261

PATIENT
  Sex: Female

DRUGS (3)
  1. VENCLEXTA [Suspect]
     Active Substance: VENETOCLAX
     Indication: Myelodysplastic syndrome
     Dosage: FORM OF ADMIN 100MG TABLET?TAKE 4 TABLET(S) BY MOUTH (400MG) DAILY ON DAYS 3-21(DISPENSED 2 RX DU...
     Route: 048
  2. VENCLEXTA [Suspect]
     Active Substance: VENETOCLAX
     Indication: Myelodysplastic syndrome
     Dosage: FORM OF ADMIN 100MG TABLET?TAKE 1 TABLET BY MOUTH (100MG) ON DAY 1
     Route: 048
  3. VENCLEXTA [Suspect]
     Active Substance: VENETOCLAX
     Indication: Myelodysplastic syndrome
     Dosage: TAKE 2 TABLET(S) BY MOUTH (200MG) ON DAY 2
     Route: 048

REACTIONS (2)
  - Bone marrow transplant [Unknown]
  - Off label use [Unknown]

NARRATIVE: CASE EVENT DATE: 20230101
